FAERS Safety Report 8602059-4 (Version None)
Quarter: 2012Q3

REPORT INFORMATION
  Report Type: 
  Country: None (occurrence: None)
  Receive Date: 20120817
  Receipt Date: 20120809
  Transmission Date: 20120928
  Serious: Yes (Other)
  Sender: FDA-Public Use
  Company Number: US-BAYER-2012-082420

PATIENT
  Sex: Male

DRUGS (1)
  1. NEXAVAR [Suspect]
     Indication: RENAL CELL CARCINOMA
     Dosage: UNK, BID
     Route: 048
     Dates: start: 20120518

REACTIONS (5)
  - PARESIS [None]
  - HYPOAESTHESIA [None]
  - MUSCLE SPASMS [None]
  - HYPOAESTHESIA ORAL [None]
  - BLINDNESS [None]
